FAERS Safety Report 6852520-8 (Version None)
Quarter: 2010Q3

REPORT INFORMATION
  Report Type: 
  Country: None (occurrence: None)
  Receive Date: 20100717
  Receipt Date: 20071119
  Transmission Date: 20110219
  Serious: No
  Sender: FDA-Public Use
  Company Number: US-PFIZER INC-2007099209

PATIENT
  Sex: Female
  Weight: 58.2 kg

DRUGS (7)
  1. CHANTIX [Suspect]
     Indication: SMOKING CESSATION THERAPY
     Dates: start: 20071112
  2. ANTABUSE [Concomitant]
  3. SERETIDE MITE [Concomitant]
  4. TIOTROPIUM BROMIDE [Concomitant]
  5. ALBUTEROL [Concomitant]
  6. LIPITOR [Concomitant]
  7. NASAL PREPARATIONS [Concomitant]

REACTIONS (2)
  - HEADACHE [None]
  - NAUSEA [None]
